FAERS Safety Report 5709527-3 (Version None)
Quarter: 2008Q2

REPORT INFORMATION
  Report Type: 
  Country: None (occurrence: None)
  Receive Date: 20080418
  Receipt Date: 20080410
  Transmission Date: 20081010
  Serious: Yes (Hospitalization)
  Sender: FDA-Public Use
  Company Number: HK-NOVOPROD-262198

PATIENT
  Sex: Female
  Weight: 72.7 kg

DRUGS (5)
  1. INSULIN DETEMIR FLEXPEN [Suspect]
     Indication: TYPE 1 DIABETES MELLITUS
     Dosage: 70 IU, QD
     Route: 058
     Dates: start: 20061121
  2. NOVORAPID FLEXPEN [Suspect]
     Indication: TYPE 1 DIABETES MELLITUS
     Dosage: 94 IU, QD
     Route: 058
     Dates: start: 20061121
  3. SIMVASTATIN [Concomitant]
     Indication: DRUG USE FOR UNKNOWN INDICATION
     Dosage: 10 MG, QD
     Route: 048
     Dates: start: 20030704
  4. LOSARTAN POTASSIUM [Concomitant]
     Indication: DRUG USE FOR UNKNOWN INDICATION
     Dosage: 50 MG, QD
     Route: 048
     Dates: start: 20040130
  5. METHYLCOBAL [Concomitant]
     Dosage: UNK, UNK

REACTIONS (1)
  - CARPAL TUNNEL SYNDROME [None]
